FAERS Safety Report 22596434 (Version 2)
Quarter: 2023Q2

REPORT INFORMATION
  Report Type: Spontaneous
  Country: FR (occurrence: FR)
  Receive Date: 20230613
  Receipt Date: 20230615
  Transmission Date: 20230721
  Serious: Yes (Death)
  Sender: FDA-Public Use
  Company Number: FR-002147023-NVSC2023FR135150

PATIENT
  Age: 54 Year
  Sex: Male

DRUGS (2)
  1. VOTRIENT [Suspect]
     Active Substance: PAZOPANIB HYDROCHLORIDE
     Indication: Neoplasm
     Dosage: 400 MG, QD (1 TABLET OF 400 MG IN THE MORNING)
     Route: 065
     Dates: start: 202304
  2. VOTRIENT [Suspect]
     Active Substance: PAZOPANIB HYDROCHLORIDE
     Dosage: 200 MG, QD (1 TABLET OF 200 MG IN THE MORNING)
     Route: 065
     Dates: start: 202304

REACTIONS (1)
  - Death [Fatal]

NARRATIVE: CASE EVENT DATE: 20230609
